FAERS Safety Report 9226252 (Version 1)
Quarter: 2013Q2

REPORT INFORMATION
  Report Type: Spontaneous
  Country: GB (occurrence: GB)
  Receive Date: 20130411
  Receipt Date: 20130411
  Transmission Date: 20140414
  Serious: Yes (Other)
  Sender: FDA-Public Use
  Company Number: GB-PFIZER INC-2013111198

PATIENT
  Age: 67 Year
  Sex: Male

DRUGS (3)
  1. RAMIPRIL [Suspect]
     Indication: CARDIAC DISORDER
     Dosage: 2.5 MG, 1X/DAY
     Route: 048
     Dates: start: 201301, end: 201303
  2. RAMIPRIL [Suspect]
     Indication: BLOOD PRESSURE FLUCTUATION
  3. BISOPROLOL [Concomitant]

REACTIONS (1)
  - Haemorrhoidal haemorrhage [Not Recovered/Not Resolved]
